FAERS Safety Report 8825885 (Version 2)
Quarter: 2013Q2

REPORT INFORMATION
  Report Type: Report from Study
  Country: CA (occurrence: CA)
  Receive Date: 20121005
  Receipt Date: 20130611
  Transmission Date: 20140414
  Serious: Yes (Hospitalization, Other)
  Sender: FDA-Public Use
  Company Number: CA-UCBSA-062732

PATIENT
  Age: 61 Year
  Sex: Female
  Weight: 81.64 kg

DRUGS (16)
  1. CIMZIA [Suspect]
     Indication: RHEUMATOID ARTHRITIS
     Dosage: UNKNOWN DOSE
     Route: 058
     Dates: start: 20120904
  2. CIMZIA [Suspect]
     Indication: RHEUMATOID ARTHRITIS
     Dosage: 200 MG EVERY 2 WEEKS
     Route: 058
     Dates: start: 20110705, end: 20120703
  3. CIMZIA [Suspect]
     Indication: RHEUMATOID ARTHRITIS
     Dosage: 400 MG EVERY 2 WEEKS
     Route: 058
     Dates: start: 20110524, end: 20110621
  4. MELOXICAM [Suspect]
     Dates: start: 2012, end: 2012
  5. METHOTREXATE [Concomitant]
     Indication: RHEUMATOID ARTHRITIS
     Dosage: 15 MG WEEKLY
     Route: 048
  6. METHOTREXATE [Concomitant]
     Indication: RHEUMATOID ARTHRITIS
     Route: 048
     Dates: start: 201010
  7. PLAQUENIL [Concomitant]
     Indication: RHEUMATOID ARTHRITIS
     Route: 048
     Dates: start: 201010, end: 2012
  8. FOLIC ACID [Concomitant]
     Dosage: 5 MG ONCE DAILY EXCEPT T-F
     Route: 048
  9. FOLIC ACID [Concomitant]
     Route: 048
     Dates: start: 201010
  10. ACTONEL [Concomitant]
     Dosage: 35 MG WEEKLY
     Route: 048
  11. PANTOLOC [Concomitant]
     Indication: PROPHYLAXIS
     Route: 048
  12. SYNTHROID [Concomitant]
     Indication: HYPOTHYROIDISM
     Route: 048
  13. PREDNISONE [Concomitant]
     Dates: end: 2012
  14. CELEBREX [Concomitant]
     Indication: RHEUMATOID ARTHRITIS
     Route: 048
     Dates: start: 201110, end: 2012
  15. BETADERM [Concomitant]
     Indication: RASH
     Dosage: UNKNOWN DOSE
     Route: 061
  16. BETADERM [Concomitant]
     Indication: ERYTHEMA
     Dosage: UNKNOWN DOSE
     Route: 061

REACTIONS (7)
  - Colitis ischaemic [Not Recovered/Not Resolved]
  - Pulmonary mass [Not Recovered/Not Resolved]
  - Scleroderma [Not Recovered/Not Resolved]
  - Weight decreased [Not Recovered/Not Resolved]
  - Dizziness [Recovered/Resolved]
  - Dyspnoea [Recovered/Resolved]
  - Fatigue [Not Recovered/Not Resolved]
